FAERS Safety Report 4554393-5 (Version None)
Quarter: 2005Q1

REPORT INFORMATION
  Report Type: 
  Country: None (occurrence: None)
  Receive Date: 20050118
  Receipt Date: 20050103
  Transmission Date: 20050727
  Serious: Yes (Other)
  Sender: FDA-Public Use
  Company Number: TR-JNJFOC-20041006548

PATIENT
  Sex: Female
  Weight: 72 kg

DRUGS (17)
  1. TOPAMAX [Suspect]
     Route: 049
  2. TOPAMAX [Suspect]
     Indication: EPILEPSY
     Route: 049
  3. VALPROATE SODIUM [Concomitant]
     Route: 049
  4. VALPROATE SODIUM [Concomitant]
     Route: 049
  5. VALPROATE SODIUM [Concomitant]
     Indication: EPILEPSY
     Route: 049
  6. LAMOTRIGINE [Concomitant]
     Indication: EPILEPSY
     Route: 049
  7. CLONAZEPAM [Concomitant]
     Indication: EPILEPSY
     Route: 049
  8. ACID FOLIC [Concomitant]
     Indication: PREGNANCY
     Route: 049
  9. MULTI-VITAMIN [Concomitant]
     Route: 065
  10. MULTI-VITAMIN [Concomitant]
     Route: 065
  11. MULTI-VITAMIN [Concomitant]
     Route: 065
  12. MULTI-VITAMIN [Concomitant]
     Route: 065
  13. MULTI-VITAMIN [Concomitant]
     Route: 065
  14. MULTI-VITAMIN [Concomitant]
     Route: 065
  15. MULTI-VITAMIN [Concomitant]
     Route: 065
  16. MULTI-VITAMIN [Concomitant]
     Indication: PREGNANCY
     Route: 065
  17. PROGESTERONE [Concomitant]
     Route: 049

REACTIONS (3)
  - ABORTION SPONTANEOUS [None]
  - DRUG EXPOSURE DURING PREGNANCY [None]
  - PREGNANCY [None]
